FAERS Safety Report 10148812 (Version 1)
Quarter: 2014Q2

REPORT INFORMATION
  Report Type: Spontaneous
  Country: US (occurrence: US)
  Receive Date: 20140502
  Receipt Date: 20140502
  Transmission Date: 20141212
  Serious: Yes (Life-Threatening)
  Sender: FDA-Public Use
  Company Number: US-ROCHE-1388610

PATIENT
  Sex: Female

DRUGS (7)
  1. XOLAIR [Suspect]
     Indication: PRODUCT USED FOR UNKNOWN INDICATION
     Route: 065
     Dates: start: 2003, end: 2009
  2. XYZAL [Concomitant]
  3. SINGULAIR [Concomitant]
  4. EFFEXOR XR [Concomitant]
  5. XANAX [Concomitant]
  6. AMBIEN [Concomitant]
  7. CELEBREX [Concomitant]

REACTIONS (4)
  - Apparent death [Unknown]
  - Lung disorder [Unknown]
  - Poor quality sleep [Unknown]
  - Asthma [Unknown]
